FAERS Safety Report 24165905 (Version 1)
Quarter: 2024Q3

REPORT INFORMATION
  Report Type: Spontaneous
  Country: RU (occurrence: None)
  Receive Date: 20240802
  Receipt Date: 20240802
  Transmission Date: 20241017
  Serious: Yes (Hospitalization, Other)
  Sender: ASTRAZENECA
  Company Number: 2024A172371

PATIENT
  Age: 3 Year
  Sex: Male

DRUGS (2)
  1. PULMICORT TURBUHALER [Suspect]
     Active Substance: BUDESONIDE
     Indication: Tracheitis
     Route: 055
  2. PULMICORT TURBUHALER [Suspect]
     Active Substance: BUDESONIDE
     Indication: Dyspnoea
     Route: 055

REACTIONS (5)
  - Condition aggravated [Unknown]
  - Tachypnoea [Unknown]
  - Drug ineffective [Unknown]
  - Decreased activity [Unknown]
  - Intentional product misuse to child [Unknown]
